FAERS Safety Report 4550416-8 (Version None)
Quarter: 2004Q4

REPORT INFORMATION
  Report Type: 
  Country: None (occurrence: None)
  Receive Date: 20041227
  Receipt Date: 20041127
  Transmission Date: 20050328
  Serious: No
  Sender: FDA-Public Use
  Company Number: 04P-163-0281803-00

PATIENT
  Age: 50 Year
  Sex: Male
  Weight: 86.1834 kg

DRUGS (5)
  1. HUMIRA [Suspect]
     Indication: RHEUMATOID ARTHRITIS
     Dosage: SEE IMAGE
     Route: 058
     Dates: start: 20040701, end: 20041001
  2. HUMIRA [Suspect]
     Indication: RHEUMATOID ARTHRITIS
     Dosage: SEE IMAGE
     Route: 058
     Dates: start: 20041122
  3. METOPROLOL TARTRATE [Concomitant]
  4. ALPRAZOLAM [Concomitant]
  5. CLOPIDOGREL BISULFATE [Concomitant]

REACTIONS (1)
  - RHEUMATOID ARTHRITIS [None]
